FAERS Safety Report 23155998 (Version 2)
Quarter: 2023Q4

REPORT INFORMATION
  Report Type: Spontaneous
  Country: JP (occurrence: JP)
  Receive Date: 20231107
  Receipt Date: 20231115
  Transmission Date: 20240109
  Serious: Yes (Life-Threatening, Hospitalization, Other)
  Sender: FDA-Public Use
  Company Number: JP-BAUSCH-BL-2023-016500

PATIENT
  Age: 72 Year
  Sex: Female
  Weight: 36.2 kg

DRUGS (3)
  1. MOVIPREP [Suspect]
     Active Substance: ASCORBIC ACID\POLYETHYLENE GLYCOL 3350\POTASSIUM CHLORIDE\SODIUM ASCORBATE\SODIUM CHLORIDE\SODIUM SU
     Indication: Endoscopy gastrointestinal
     Route: 048
  2. SODIUM PICOSULFATE [Suspect]
     Active Substance: SODIUM PICOSULFATE
     Indication: Endoscopy gastrointestinal
     Route: 048
  3. AMINO ACIDS\CARBOHYDRATES\MINERALS\SOYBEAN OIL\VITAMINS [Suspect]
     Active Substance: AMINO ACIDS\CARBOHYDRATES\MINERALS\SOYBEAN OIL\VITAMINS
     Indication: Supplementation therapy
     Route: 048

REACTIONS (6)
  - Septic shock [Recovered/Resolved]
  - Bacterial translocation [Recovered/Resolved]
  - Disseminated intravascular coagulation [Recovered/Resolved]
  - Respiratory disorder [Recovered/Resolved]
  - Pyrexia [Recovered/Resolved]
  - Contraindicated product administered [Unknown]
